FAERS Safety Report 25154383 (Version 1)
Quarter: 2025Q2

REPORT INFORMATION
  Report Type: Spontaneous
  Country: US (occurrence: US)
  Receive Date: 20250403
  Receipt Date: 20250403
  Transmission Date: 20250716
  Serious: Yes (Disabling, Other)
  Sender: REGENERON
  Company Number: US-REGENERON PHARMACEUTICALS, INC.-2025-055857

PATIENT
  Sex: Female

DRUGS (1)
  1. EYLEA [Suspect]
     Active Substance: AFLIBERCEPT
     Indication: Neovascular age-related macular degeneration
     Dosage: UNK, EVERY 6 WEEKS, LEFT EYE, FORMULATION: UNKNOWN
     Route: 031
     Dates: start: 2020

REACTIONS (3)
  - Neovascular age-related macular degeneration [Unknown]
  - Eye infection [Unknown]
  - Blindness unilateral [Unknown]
